FAERS Safety Report 4763542-5 (Version None)
Quarter: 2005Q3

REPORT INFORMATION
  Report Type: 
  Country: None (occurrence: None)
  Receive Date: 20050908
  Receipt Date: 20050509
  Transmission Date: 20060218
  Serious: Yes (Hospitalization)
  Sender: FDA-Public Use
  Company Number: GB-BRISTOL-MYERS SQUIBB COMPANY-12960043

PATIENT
  Age: 76 Year
  Sex: Male
  Weight: 64 kg

DRUGS (8)
  1. CARBOPLATIN [Suspect]
     Indication: NEOPLASM MALIGNANT
     Route: 042
     Dates: start: 20050225, end: 20050225
  2. ETOPOSIDE [Suspect]
     Indication: NEOPLASM MALIGNANT
     Route: 042
     Dates: start: 20050204, end: 20050204
  3. MOVICOL [Concomitant]
     Route: 048
  4. SIMVASTATIN [Concomitant]
     Route: 048
  5. LANSOPRAZOLE [Concomitant]
     Indication: GASTROOESOPHAGEAL REFLUX DISEASE
     Route: 048
  6. ASPIRIN [Concomitant]
     Route: 048
  7. DOMPERIDONE [Concomitant]
  8. XALATAN [Concomitant]
     Route: 048
     Dates: end: 20050225

REACTIONS (5)
  - CHILLS [None]
  - CONFUSIONAL STATE [None]
  - HYPOTENSION [None]
  - LETHARGY [None]
  - NEUTROPHIL COUNT DECREASED [None]
